FAERS Safety Report 9884575 (Version 1)
Quarter: 2014Q1

REPORT INFORMATION
  Report Type: Spontaneous
  Country: US (occurrence: None)
  Receive Date: 20140207
  Receipt Date: 20140207
  Transmission Date: 20141002
  Serious: No
  Sender: FDA-Public Use
  Company Number: None

PATIENT
  Age: 42 Year
  Sex: Female
  Weight: 100.7 kg

DRUGS (1)
  1. THINOGENICS [Suspect]
     Indication: WEIGHT ABNORMAL
     Dates: start: 20130722, end: 20140203

REACTIONS (4)
  - Urinary tract infection [None]
  - Headache [None]
  - Stress [None]
  - Anxiety [None]
